FAERS Safety Report 10922847 (Version 1)
Quarter: 2015Q1

REPORT INFORMATION
  Report Type: Spontaneous
  Country: US (occurrence: None)
  Receive Date: 20150313
  Receipt Date: 20150313
  Transmission Date: 20150721
  Serious: Yes (Hospitalization)
  Sender: FDA-Public Use
  Company Number: 2015JUB00073

PATIENT
  Age: 86 Year
  Sex: Female

DRUGS (1)
  1. ALENDRONATE (ALENDRONATE) TABLET [Suspect]
     Active Substance: ALENDRONATE SODIUM
     Route: 048

REACTIONS (9)
  - Wrong technique in drug usage process [None]
  - Dehydration [None]
  - Hypertensive crisis [None]
  - Disorientation [None]
  - Stomatitis [None]
  - Jugular vein distension [None]
  - Disturbance in attention [None]
  - Oesophageal motility disorder [None]
  - Lip disorder [None]
